FAERS Safety Report 6061340-6 (Version None)
Quarter: 2009Q1

REPORT INFORMATION
  Report Type: 
  Country: None (occurrence: None)
  Receive Date: 20090130
  Receipt Date: 20090130
  Transmission Date: 20090719
  Serious: No
  Sender: FDA-Public Use
  Company Number: None

PATIENT
  Age: 60 Year
  Sex: Male
  Weight: 86.1834 kg

DRUGS (1)
  1. METOPROLOL SUCCINATE [Suspect]
     Indication: ARRHYTHMIA
     Dosage: 1 PILL DAILY PO
     Route: 048
     Dates: start: 20090105, end: 20090129

REACTIONS (4)
  - COAGULOPATHY [None]
  - DYSPNOEA [None]
  - HEADACHE [None]
  - PRODUCT QUALITY ISSUE [None]
